FAERS Safety Report 4628530-8 (Version None)
Quarter: 2005Q2

REPORT INFORMATION
  Report Type: 
  Country: None (occurrence: None)
  Receive Date: 20050404
  Receipt Date: 20050321
  Transmission Date: 20051028
  Serious: Yes (Hospitalization, Other)
  Sender: FDA-Public Use
  Company Number: SUSI-2005-00230

PATIENT
  Age: 57 Year
  Sex: Male

DRUGS (2)
  1. MESALAZINE CONTROLLED RELEASE (MESALAZINE) CAPSULE CR [Suspect]
     Dosage: SEE IMAGE
     Dates: start: 19941001, end: 19961101
  2. MESALAZINE CONTROLLED RELEASE (MESALAZINE) CAPSULE CR [Suspect]
     Dosage: SEE IMAGE
     Dates: start: 19961101, end: 19971101

REACTIONS (17)
  - ACQUIRED DIAPHRAGMATIC EVENTRATION [None]
  - ANEURYSM [None]
  - ANTINUCLEAR ANTIBODY POSITIVE [None]
  - ATELECTASIS [None]
  - AUTOIMMUNE DISORDER [None]
  - BLOOD FIBRINOGEN INCREASED [None]
  - C-REACTIVE PROTEIN INCREASED [None]
  - CONNECTIVE TISSUE DISORDER [None]
  - CRYPTOGENIC CIRRHOSIS [None]
  - HAEMORRHAGIC DISORDER [None]
  - HEPATOMEGALY [None]
  - LUPUS-LIKE SYNDROME [None]
  - OBSTRUCTIVE AIRWAYS DISORDER [None]
  - PNEUMONITIS [None]
  - RED BLOOD CELL COUNT INCREASED [None]
  - RED BLOOD CELL SEDIMENTATION RATE INCREASED [None]
  - SPINAL FRACTURE [None]
